FAERS Safety Report 7301332-X (Version None)
Quarter: 2011Q1

REPORT INFORMATION
  Report Type: 
  Country: None (occurrence: None)
  Receive Date: 20110113
  Receipt Date: 20101026
  Transmission Date: 20110831
  Serious: No
  Sender: FDA-Public Use
  Company Number: US-001363

PATIENT
  Sex: Female
  Weight: 58.7 kg

DRUGS (4)
  1. KUVAN [Suspect]
     Indication: PHENYLKETONURIA
     Dosage: (20 MG/KG QD ORAL) (10 MG/KG QD ORAL)
     Route: 048
     Dates: start: 20101011, end: 20101025
  2. KUVAN [Suspect]
     Indication: PHENYLKETONURIA
     Dosage: (20 MG/KG QD ORAL) (10 MG/KG QD ORAL)
     Route: 048
     Dates: start: 20101026
  3. CONTRACEPTIVES NOS [Concomitant]
  4. MULTI-VITAMINS [Concomitant]

REACTIONS (9)
  - NERVOUSNESS [None]
  - FEELING ABNORMAL [None]
  - FEELING COLD [None]
  - INCREASED APPETITE [None]
  - FEELING JITTERY [None]
  - HYPERHIDROSIS [None]
  - ASTHENIA [None]
  - DISTURBANCE IN ATTENTION [None]
  - INSOMNIA [None]
